FAERS Safety Report 8182430 (Version 5)
Quarter: 2015Q1

REPORT INFORMATION
  Report Type: Spontaneous
  Country: US (occurrence: US)
  Receive Date: 20111015
  Receipt Date: 20150209
  Transmission Date: 20150721
  Serious: Yes (Other)
  Sender: FDA-Public Use
  Company Number: US-ASTRAZENECA-2011SE17427

PATIENT
  Age: 713 Month
  Sex: Female
  Weight: 49 kg

DRUGS (16)
  1. CRANBERRY. [Concomitant]
     Active Substance: CRANBERRY
     Indication: URINARY TRACT DISORDER
     Route: 048
  2. PRELIEF [Concomitant]
     Active Substance: CALCIUM GLYCEROPHOSPHATE
     Indication: BLADDER IRRITATION
     Route: 048
     Dates: start: 2012
  3. KLONOPIN [Concomitant]
     Active Substance: CLONAZEPAM
     Indication: ANXIETY
     Route: 048
     Dates: start: 200307
  4. MULTIVITAMIN [Concomitant]
     Active Substance: VITAMINS
     Indication: ANXIETY
     Dosage: DAILY
     Route: 048
  5. CITRACAL [Concomitant]
     Active Substance: CALCIUM CITRATE
     Dosage: DAILY
     Route: 048
     Dates: start: 2010
  6. COQ10 [Concomitant]
     Active Substance: UBIDECARENONE
     Route: 048
     Dates: start: 2012
  7. ARIMIDEX [Suspect]
     Active Substance: ANASTROZOLE
     Indication: BREAST CANCER
     Route: 048
     Dates: start: 201005
  8. QUESTRAN [Suspect]
     Active Substance: CHOLESTYRAMINE
     Indication: DIARRHOEA
     Route: 065
  9. LEUTIN [Concomitant]
     Indication: MACULAR DEGENERATION
  10. CINAMON [Concomitant]
     Indication: CIRCULATORY COLLAPSE
  11. KENALOG [Concomitant]
     Active Substance: TRIAMCINOLONE ACETONIDE
     Indication: ARTHRALGIA
     Route: 058
     Dates: end: 201409
  12. CRESTOR [Suspect]
     Active Substance: ROSUVASTATIN CALCIUM
     Indication: BLOOD CHOLESTEROL INCREASED
     Route: 048
  13. CRESTOR [Suspect]
     Active Substance: ROSUVASTATIN CALCIUM
     Indication: BLOOD CHOLESTEROL INCREASED
     Route: 048
     Dates: start: 201211
  14. ARIMIDEX [Suspect]
     Active Substance: ANASTROZOLE
     Indication: BREAST CANCER
     Route: 048
     Dates: start: 2008
  15. VITAMIN D3 [Concomitant]
     Active Substance: CHOLECALCIFEROL
     Route: 048
  16. KLONOPIN [Concomitant]
     Active Substance: CLONAZEPAM
     Indication: SLEEP DISORDER
     Route: 048
     Dates: start: 200307

REACTIONS (18)
  - Dry mouth [Unknown]
  - Blood cholesterol increased [Unknown]
  - Breast cancer [Unknown]
  - Tumour marker increased [Unknown]
  - Dry throat [Unknown]
  - Diarrhoea [Recovered/Resolved]
  - Fear [Unknown]
  - Cough [Unknown]
  - Blood glucose increased [Unknown]
  - Splenic artery aneurysm [Unknown]
  - Hyperhidrosis [Unknown]
  - Irritable bowel syndrome [Recovered/Resolved]
  - Abdominal discomfort [Unknown]
  - Fatigue [Unknown]
  - Breast mass [Unknown]
  - Arthropathy [Unknown]
  - Osteoarthritis [Not Recovered/Not Resolved]
  - Constipation [Unknown]

NARRATIVE: CASE EVENT DATE: 200910
